FAERS Safety Report 7469009-8 (Version None)
Quarter: 2011Q2

REPORT INFORMATION
  Report Type: 
  Country: None (occurrence: None)
  Receive Date: 20110429
  Receipt Date: 20110425
  Transmission Date: 20111010
  Serious: Yes (Other)
  Sender: FDA-Public Use
  Company Number: 2011SP010317

PATIENT
  Age: 46 Year
  Sex: Male
  Weight: 32.659 kg

DRUGS (5)
  1. BETAMETHASONE [Concomitant]
  2. PEG-INTRON [Suspect]
     Indication: HEPATITIS C
     Dosage: 100 MCG; QW; SC;50 MCG; QW; SC
     Route: 058
     Dates: start: 20101207, end: 20110228
  3. PEG-INTRON [Suspect]
     Indication: HEPATITIS C
     Dosage: 100 MCG; QW; SC;50 MCG; QW; SC
     Route: 058
     Dates: start: 20110307
  4. REBETOL [Suspect]
     Indication: HEPATITIS C
     Dosage: 800 MG; QD; PO; PO
     Route: 048
     Dates: start: 20110307
  5. REBETOL [Suspect]
     Indication: HEPATITIS C
     Dosage: 800 MG; QD; PO; PO
     Route: 048
     Dates: start: 20101207, end: 20110228

REACTIONS (4)
  - SNORING [None]
  - INJECTION SITE ECZEMA [None]
  - EPILEPSY [None]
  - SYNCOPE [None]
